FAERS Safety Report 7590278-8 (Version None)
Quarter: 2011Q3

REPORT INFORMATION
  Report Type: 
  Country: None (occurrence: None)
  Receive Date: 20110705
  Receipt Date: 20081017
  Transmission Date: 20111222
  Serious: Yes (Hospitalization, Other)
  Sender: FDA-Public Use
  Company Number: US-BAYER-200836313NA

PATIENT
  Age: 74 Year
  Sex: Female
  Weight: 76 kg

DRUGS (14)
  1. LASIX [Concomitant]
  2. MANNITOL [Concomitant]
     Dosage: 37.5 G, UNK
     Route: 042
     Dates: start: 20050418, end: 20050418
  3. HEPARIN [Concomitant]
     Dosage: 10000 U, UNK
     Route: 042
     Dates: start: 20050418
  4. RED BLOOD CELLS [Concomitant]
     Dosage: 2 U, UNK
     Route: 042
     Dates: start: 20050418, end: 20050418
  5. MAGNESIUM SULFATE [Concomitant]
     Dosage: 2 G, UNK
     Route: 042
     Dates: start: 20050418, end: 20050418
  6. NIACIN [Concomitant]
  7. SEVOFLURANE [Concomitant]
     Dosage: UNK
     Dates: start: 20050418
  8. LIDOCAINE [Concomitant]
     Dosage: 100 MG, UNK
     Route: 042
     Dates: start: 20050418, end: 20050418
  9. SODIUM BICARBONATE [Concomitant]
     Dosage: 50 MEQ, UNK
     Route: 042
     Dates: start: 20050418, end: 20050418
  10. TRASYLOL [Suspect]
     Indication: PRODUCT USED FOR UNKNOWN INDICATION
     Dosage: 200 ML, UNK, LOADING DOSE
     Route: 042
     Dates: start: 20050418, end: 20050418
  11. POTASSIUM [Concomitant]
  12. PROTAMINE SULFATE [Concomitant]
     Dosage: UNK
     Route: 042
     Dates: start: 20050418, end: 20050418
  13. TRASYLOL [Suspect]
     Indication: MITRAL VALVE REPLACEMENT
  14. HESPAN IN EXCEL PLASTIC CONTAINER [Concomitant]
     Dosage: 500 ML, UNK
     Route: 042
     Dates: start: 20050418

REACTIONS (9)
  - RENAL FAILURE [None]
  - RENAL INJURY [None]
  - EMOTIONAL DISTRESS [None]
  - STRESS [None]
  - UNEVALUABLE EVENT [None]
  - RENAL IMPAIRMENT [None]
  - PAIN [None]
  - ANXIETY [None]
  - FEAR [None]
